FAERS Safety Report 4754807-1 (Version None)
Quarter: 2005Q3

REPORT INFORMATION
  Report Type: 
  Country: None (occurrence: None)
  Receive Date: 20050825
  Receipt Date: 20050804
  Transmission Date: 20060218
  Serious: Yes (Death, Hospitalization)
  Sender: FDA-Public Use
  Company Number: CERZ-10975

PATIENT
  Age: 23 Year
  Sex: Male
  Weight: 62 kg

DRUGS (2)
  1. CEREZYME [Suspect]
     Indication: GAUCHER'S DISEASE
     Dosage: 60 U/KG Q2WKS IV
     Route: 042
     Dates: start: 19990528, end: 20001101
  2. UNSPECIFIED ANTI-SEIZURE MEDICATION [Concomitant]

REACTIONS (4)
  - BRONCHITIS [None]
  - CHOKING [None]
  - DYSPHAGIA [None]
  - RESPIRATORY FAILURE [None]
